FAERS Safety Report 9912404 (Version 1)
Quarter: 2014Q1

REPORT INFORMATION
  Report Type: Report from Study
  Country: BE (occurrence: BE)
  Receive Date: 20140220
  Receipt Date: 20140220
  Transmission Date: 20141002
  Serious: Yes (Other)
  Sender: FDA-Public Use
  Company Number: BE-ROCHE-1346539

PATIENT
  Age: 28 Year
  Sex: Female

DRUGS (1)
  1. CELLCEPT [Suspect]
     Indication: LUPUS NEPHRITIS
     Route: 065

REACTIONS (5)
  - Lupus nephritis [Unknown]
  - Proteinuria [Unknown]
  - Diffuse alopecia [Unknown]
  - Pyrexia [Unknown]
  - Off label use [Unknown]
